FAERS Safety Report 17425695 (Version 4)
Quarter: 2020Q3

REPORT INFORMATION
  Report Type: Report from Study
  Country: JP (occurrence: JP)
  Receive Date: 20200217
  Receipt Date: 20200714
  Transmission Date: 20201102
  Serious: Yes (Hospitalization)
  Sender: FDA-Public Use
  Company Number: JP-ROCHE-2517739

PATIENT
  Age: 70 Year
  Sex: Male
  Weight: 48.5 kg

DRUGS (30)
  1. FENTOS [Concomitant]
     Active Substance: FENTANYL
     Indication: CANCER PAIN
     Dosage: SPREADING AND THE BEGINNING OF DOSAGE DAY: BEFORE IT PARTICIPATES IN THE TRIAL
     Route: 061
  2. ATEZOLIZUMAB. [Suspect]
     Active Substance: ATEZOLIZUMAB
     Indication: NON-SMALL CELL LUNG CANCER
     Route: 042
     Dates: start: 20191203, end: 20200121
  3. NEXIUM [Concomitant]
     Active Substance: ESOMEPRAZOLE MAGNESIUM
     Route: 048
  4. FLUNITRAZEPAM [Concomitant]
     Active Substance: FLUNITRAZEPAM
     Indication: INSOMNIA
     Dosage: ADMINISTRATION START DATE: BEFORE STUDY PARTICIPATION
     Route: 048
  5. OXYCONTIN TR [Concomitant]
     Active Substance: OXYCODONE HYDROCHLORIDE
     Route: 048
     Dates: start: 20200125
  6. FENTOS [Concomitant]
     Active Substance: FENTANYL
     Route: 061
     Dates: start: 20200126
  7. PRAVASTATIN NA [Concomitant]
     Active Substance: PRAVASTATIN SODIUM
     Indication: DYSLIPIDAEMIA
     Dosage: ADMINISTRATION START DATE: BEFORE STUDY PARTICIPATION
     Route: 048
  8. OXYCONTIN TR [Concomitant]
     Active Substance: OXYCODONE HYDROCHLORIDE
     Indication: CANCER PAIN
     Dosage: ADMINISTRATION START DATE: BEFORE STUDY PARTICIPATION
     Route: 048
  9. OXYCONTIN TR [Concomitant]
     Active Substance: OXYCODONE HYDROCHLORIDE
     Dosage: ADMINISTRATION START DATE: BEFORE STUDY PARTICIPATION
     Route: 048
  10. BESOFTEN [Concomitant]
     Active Substance: PENTOSAN POLYSULFATE SODIUM
     Route: 003
  11. LOXOPROFEN [Concomitant]
     Active Substance: LOXOPROFEN
     Indication: CANCER PAIN
     Route: 048
     Dates: start: 20191225
  12. FRESMIN S [Concomitant]
     Active Substance: HYDROXOCOBALAMIN
     Indication: PROPHYLAXIS
     Dosage: ONCE 1A
     Route: 030
  13. NOVAMIN (JAPAN) [Concomitant]
     Indication: NAUSEA
     Route: 048
  14. FENTOS [Concomitant]
     Active Substance: FENTANYL
     Dates: start: 20200127
  15. MAGNESIUM OXIDE. [Concomitant]
     Active Substance: MAGNESIUM OXIDE
     Indication: CONSTIPATION
     Dosage: ADMINISTRATION START DATE: BEFORE STUDY PARTICIPATION
     Route: 048
  16. BROTIZOLAM [Concomitant]
     Active Substance: BROTIZOLAM
     Indication: INSOMNIA
     Dosage: ADMINISTRATION START DATE: BEFORE STUDY PARTICIPATION
     Route: 048
  17. REFLEX [Concomitant]
     Active Substance: MIRTAZAPINE
     Indication: CANCER PAIN
     Dosage: ADMINISTRATION START DATE: BEFORE STUDY PARTICIPATION
     Route: 048
  18. METOCLOPRAMIDE. [Concomitant]
     Active Substance: METOCLOPRAMIDE
     Indication: NAUSEA
     Dosage: SINGLE USE
     Route: 048
     Dates: start: 20191225
  19. DENOSUMAB [Concomitant]
     Active Substance: DENOSUMAB
  20. MIYA?BM [Concomitant]
     Active Substance: CLOSTRIDIUM BUTYRICUM SPORES STRAIN M-55
     Indication: CONSTIPATION
     Route: 048
  21. BESOFTEN [Concomitant]
     Active Substance: PENTOSAN POLYSULFATE SODIUM
     Indication: ASTEATOSIS
     Dosage: TOPICAL, DOSAGE UNKNOWN
     Route: 061
     Dates: start: 20191228
  22. ALIMTA [Suspect]
     Active Substance: PEMETREXED DISODIUM
     Indication: NON-SMALL CELL LUNG CANCER
     Route: 041
     Dates: start: 20191203, end: 20200121
  23. CARBOPLATIN. [Suspect]
     Active Substance: CARBOPLATIN
     Indication: NON-SMALL CELL LUNG CANCER
     Route: 041
     Dates: start: 20191203, end: 20200121
  24. CALONAL [Concomitant]
     Active Substance: ACETAMINOPHEN
     Indication: CANCER PAIN
     Dosage: ADMINISTRATION START DATE: BEFORE STUDY PARTICIPATION
     Route: 048
  25. FENTOS [Concomitant]
     Active Substance: FENTANYL
     Route: 061
     Dates: start: 20200125
  26. BEVACIZUMAB. [Suspect]
     Active Substance: BEVACIZUMAB
     Indication: NON-SMALL CELL LUNG CANCER
     Route: 041
     Dates: start: 20191203, end: 20200121
  27. NEXIUM [Concomitant]
     Active Substance: ESOMEPRAZOLE MAGNESIUM
     Indication: GASTROOESOPHAGEAL REFLUX DISEASE
     Dosage: ADMINISTRATION START DATE: BEFORE STUDY PARTICIPATION
     Route: 048
  28. OXYCONTIN TR [Concomitant]
     Active Substance: OXYCODONE HYDROCHLORIDE
     Route: 048
     Dates: start: 20200126
  29. OXINORM (JAPAN) [Concomitant]
     Active Substance: OXYCODONE HYDROCHLORIDE
     Indication: CANCER PAIN
     Dosage: SINGLE USE, ADMINISTRATION START DATE: BEFORE STUDY PARTICIPATION
     Route: 048
  30. OXINORM (JAPAN) [Concomitant]
     Active Substance: OXYCODONE HYDROCHLORIDE
     Dosage: AS REQUIRED
     Route: 048

REACTIONS (3)
  - Tumour pain [Recovering/Resolving]
  - Musculoskeletal pain [Not Recovered/Not Resolved]
  - Pneumonia [Recovered/Resolved]

NARRATIVE: CASE EVENT DATE: 20191230
